FAERS Safety Report 12001524 (Version 3)
Quarter: 2016Q4

REPORT INFORMATION
  Report Type: Spontaneous
  Country: CO (occurrence: CO)
  Receive Date: 20160204
  Receipt Date: 20161219
  Transmission Date: 20170206
  Serious: Yes (Other)
  Sender: FDA-Public Use
  Company Number: CO-JNJFOC-20160123105

PATIENT
  Age: 40 Year
  Sex: Female
  Weight: 62 kg

DRUGS (4)
  1. USTEKINUMAB [Suspect]
     Active Substance: USTEKINUMAB
     Indication: PSORIATIC ARTHROPATHY
     Route: 058
  2. METHOTREXATE. [Suspect]
     Active Substance: METHOTREXATE
     Indication: PRODUCT USED FOR UNKNOWN INDICATION
     Route: 065
  3. USTEKINUMAB [Suspect]
     Active Substance: USTEKINUMAB
     Indication: PSORIATIC ARTHROPATHY
     Route: 058
     Dates: start: 20120405, end: 20160113
  4. METHOTREXATE. [Suspect]
     Active Substance: METHOTREXATE
     Indication: PRODUCT USED FOR UNKNOWN INDICATION
     Route: 065

REACTIONS (11)
  - Leukopenia [Unknown]
  - Blood cholesterol increased [Unknown]
  - Onycholysis [Unknown]
  - Hysterectomy [Unknown]
  - Alopecia areata [Unknown]
  - Psoriasis [Unknown]
  - Melanocytic naevus [Unknown]
  - Neutropenia [Not Recovered/Not Resolved]
  - Psoriatic arthropathy [Unknown]
  - Guttate psoriasis [Unknown]
  - Bone operation [Unknown]
